FAERS Safety Report 10407971 (Version 1)
Quarter: 2014Q2

REPORT INFORMATION
  Report Type: Spontaneous
  Country: US (occurrence: None)
  Receive Date: 20140514
  Receipt Date: 20140514
  Transmission Date: 20141212
  Serious: Yes (Other)
  Sender: FDA-Public Use
  Company Number: 114288U

PATIENT
  Age: 66 Year
  Sex: Female

DRUGS (1)
  1. CIMZIA [Suspect]
     Indication: CROHN^S DISEASE
     Dosage: 400 MG, 1X/4 WEEKS

REACTIONS (8)
  - Haematochezia [None]
  - Colitis [None]
  - Proctitis [None]
  - Skin lesion [None]
  - Nausea [None]
  - Vomiting [None]
  - Tremor [None]
  - Chills [None]
